FAERS Safety Report 18460756 (Version 1)
Quarter: 2020Q4

REPORT INFORMATION
  Report Type: Other
  Country: US (occurrence: US)
  Receive Date: 20201104
  Receipt Date: 20201104
  Transmission Date: 20210114
  Serious: No
  Sender: FDA-Public Use
  Company Number: US-AJANTA PHARMA USA INC.-2093577

PATIENT
  Age: 73 Year
  Sex: Male

DRUGS (1)
  1. SILDENAFIL?(ANDA 206401) [Suspect]
     Active Substance: SILDENAFIL CITRATE

REACTIONS (2)
  - Drug ineffective [Unknown]
  - Product quality issue [Unknown]

NARRATIVE: CASE EVENT DATE: 20200710
